FAERS Safety Report 24279570 (Version 1)
Quarter: 2024Q3

REPORT INFORMATION
  Report Type: Spontaneous
  Country: US (occurrence: US)
  Receive Date: 20240904
  Receipt Date: 20240904
  Transmission Date: 20241016
  Serious: No
  Sender: BOEHRINGER INGELHEIM
  Company Number: US-Komodo Health-a23aa000002wg49AAA

PATIENT
  Age: 65 Year
  Sex: Female

DRUGS (3)
  1. JARDIANCE [Suspect]
     Active Substance: EMPAGLIFLOZIN
     Indication: Product used for unknown indication
     Dates: start: 20240529
  2. JARDIANCE [Suspect]
     Active Substance: EMPAGLIFLOZIN
     Dates: start: 20240722, end: 20240820
  3. METFORMIN [Concomitant]
     Active Substance: METFORMIN HYDROCHLORIDE
     Indication: Product used for unknown indication

REACTIONS (5)
  - Oedema peripheral [Recovered/Resolved]
  - Urinary tract infection [Recovered/Resolved]
  - Road traffic accident [Unknown]
  - Weight decreased [Unknown]
  - Shoulder operation [Unknown]

NARRATIVE: CASE EVENT DATE: 20240801
